FAERS Safety Report 10305773 (Version 1)
Quarter: 2014Q3

REPORT INFORMATION
  Report Type: Spontaneous
  Country: US (occurrence: None)
  Receive Date: 20140711
  Receipt Date: 20140711
  Transmission Date: 20150326
  Serious: No
  Sender: FDA-Public Use
  Company Number: 2014RT000045

PATIENT
  Age: 12 Year
  Sex: Male
  Weight: 55.5 kg

DRUGS (1)
  1. PROCYSBI DELAYED-RELEASE [Suspect]
     Active Substance: CYSTEAMINE BITARTRATE
     Indication: CYSTINOSIS
     Dosage: 10 CAPSULES, UNK MG VIA G-TUBE
     Dates: start: 201404

REACTIONS (5)
  - Vomiting [None]
  - Nausea [None]
  - Inappropriate schedule of drug administration [None]
  - Feeding tube complication [None]
  - Malaise [None]

NARRATIVE: CASE EVENT DATE: 201404
